FAERS Safety Report 12611817 (Version 1)
Quarter: 2016Q3

REPORT INFORMATION
  Report Type: Spontaneous
  Country: US (occurrence: US)
  Receive Date: 20160801
  Receipt Date: 20160801
  Transmission Date: 20161109
  Serious: No
  Sender: FDA-Public Use
  Company Number: US-PFIZER INC-2984497

PATIENT
  Age: 60 Year
  Sex: Male

DRUGS (9)
  1. VITAMIN D2 [Concomitant]
     Active Substance: ERGOCALCIFEROL
     Indication: VITAMIN SUPPLEMENTATION
     Dosage: 50,000 U, FREQ: 1 WEEK; INTERVAL: 1.
     Route: 048
  2. ALBUTEROL SULFATE. [Concomitant]
     Active Substance: ALBUTEROL SULFATE
     Indication: CHRONIC OBSTRUCTIVE PULMONARY DISEASE
     Dosage: 0.25 MG, FREQ: 1 DAY; INTERVAL: 1.
     Route: 055
  3. TOPROL XL [Concomitant]
     Active Substance: METOPROLOL SUCCINATE
     Indication: HYPERTENSION
     Dosage: 25 MG, FREQ: 1 DAY; INTERVAL: 1.
     Route: 048
  4. TUDORZA PRESSAIR [Concomitant]
     Active Substance: ACLIDINIUM BROMIDE
     Indication: CHRONIC OBSTRUCTIVE PULMONARY DISEASE
     Dosage: 400 MG, FREQ: 1 DAY; INTERVAL: 1.
     Route: 055
  5. ISOSORBIDE. [Concomitant]
     Active Substance: ISOSORBIDE
     Indication: STENT PLACEMENT
     Dosage: 60 MG, FREQ: 1 DAY; INTERVAL: 1.
     Route: 048
  6. NAPROSYN [Concomitant]
     Active Substance: NAPROXEN
     Indication: PAIN
     Dosage: 500 MG, BID -PRN
     Route: 048
  7. PLAVIX [Concomitant]
     Active Substance: CLOPIDOGREL BISULFATE
     Indication: STENT PLACEMENT
     Dosage: 15 MG, FREQ:1 DAY; INTERVAL: 1.
     Route: 048
  8. RANEXA [Concomitant]
     Active Substance: RANOLAZINE
     Indication: PRODUCT USED FOR UNKNOWN INDICATION
     Dosage: 500 MG, 6-7 MOS, FREQ: 1 DAY; INTERVAL: 1.
     Route: 048
  9. METHOTREXATE SODIUM. [Suspect]
     Active Substance: METHOTREXATE SODIUM
     Indication: PRODUCT USED FOR UNKNOWN INDICATION
     Dosage: 5 MG OR 5 ML, FREQ: 1 WEEK; INTERVAL: 1.
     Route: 058
     Dates: start: 20150301

REACTIONS (4)
  - Vibratory sense increased [Not Recovered/Not Resolved]
  - Headache [Not Recovered/Not Resolved]
  - Accidental exposure to product [Not Recovered/Not Resolved]
  - Urine amphetamine positive [Not Recovered/Not Resolved]

NARRATIVE: CASE EVENT DATE: 20150301
